FAERS Safety Report 25021822 (Version 1)
Quarter: 2025Q1

REPORT INFORMATION
  Report Type: Spontaneous
  Country: JP (occurrence: JP)
  Receive Date: 20250228
  Receipt Date: 20250228
  Transmission Date: 20250409
  Serious: Yes (Hospitalization, Other)
  Sender: PANACEA BIOTEC PHARMA LIMITED
  Company Number: JP-PBT-010180

PATIENT
  Age: 4 Year
  Sex: Male

DRUGS (1)
  1. TACROLIMUS [Suspect]
     Active Substance: TACROLIMUS
     Indication: Prophylaxis against transplant rejection
     Route: 065

REACTIONS (3)
  - Hepatopulmonary syndrome [Unknown]
  - Vasoconstriction [Unknown]
  - Drug level increased [Unknown]
